FAERS Safety Report 4361631-0 (Version None)
Quarter: 2004Q2

REPORT INFORMATION
  Report Type: 
  Country: None (occurrence: None)
  Receive Date: 20040521
  Receipt Date: 20040413
  Transmission Date: 20050107
  Serious: Yes (Disabling)
  Sender: FDA-Public Use
  Company Number: US-GLAXOSMITHKLINE-A0507051A

PATIENT
  Age: 39 Year
  Sex: Male

DRUGS (2)
  1. WELLBUTRIN XL [Suspect]
     Indication: DEPRESSION
     Route: 048
     Dates: start: 20040316, end: 20040331
  2. ELAVIL [Concomitant]
     Indication: INSOMNIA
     Dosage: 50MG AT NIGHT
     Route: 048
     Dates: start: 20040101

REACTIONS (3)
  - ANXIETY [None]
  - DELUSION [None]
  - PARANOIA [None]
